FAERS Safety Report 19569731 (Version 1)
Quarter: 2021Q3

REPORT INFORMATION
  Report Type: Report from Study
  Country: IN (occurrence: IN)
  Receive Date: 20210716
  Receipt Date: 20210716
  Transmission Date: 20211014
  Serious: Yes (Death, Other)
  Sender: FDA-Public Use
  Company Number: NVSC2021IN159655

PATIENT
  Age: 63 Year
  Sex: Female

DRUGS (1)
  1. SIMULECT [Suspect]
     Active Substance: BASILIXIMAB
     Indication: RENAL TRANSPLANT
     Dosage: 20 MG, UNKNOWN
     Route: 065
     Dates: start: 20210306, end: 20210310

REACTIONS (2)
  - Multiple organ dysfunction syndrome [Fatal]
  - Transplant rejection [Unknown]

NARRATIVE: CASE EVENT DATE: 20210327
